FAERS Safety Report 10172109 (Version 3)
Quarter: 2014Q2

REPORT INFORMATION
  Report Type: Report from Study
  Country: US (occurrence: US)
  Receive Date: 20140515
  Receipt Date: 20140617
  Transmission Date: 20141212
  Serious: Yes (Other)
  Sender: FDA-Public Use
  Company Number: PHEH2014US009611

PATIENT
  Sex: Male
  Weight: 65.32 kg

DRUGS (1)
  1. GILENYA [Suspect]
     Indication: MULTIPLE SCLEROSIS
     Dosage: 0.5 MG, QD
     Route: 048
     Dates: start: 2011, end: 201401

REACTIONS (11)
  - Blindness unilateral [Unknown]
  - Eye pain [Unknown]
  - Malaise [Unknown]
  - Fatigue [Unknown]
  - Balance disorder [Unknown]
  - Musculoskeletal discomfort [Unknown]
  - Micturition urgency [Unknown]
  - Pollakiuria [Unknown]
  - Hepatic enzyme increased [Unknown]
  - Aspartate aminotransferase increased [Unknown]
  - Alanine aminotransferase increased [Unknown]
